FAERS Safety Report 8188877-8 (Version None)
Quarter: 2012Q1

REPORT INFORMATION
  Report Type: 
  Country: None (occurrence: None)
  Receive Date: 20120306
  Receipt Date: 20120227
  Transmission Date: 20120608
  Serious: Yes (Other)
  Sender: FDA-Public Use
  Company Number: US-ROCHE-1020273

PATIENT
  Sex: Female
  Weight: 68.1 kg

DRUGS (2)
  1. ACCUTANE [Suspect]
     Route: 048
     Dates: start: 19921222, end: 19930401
  2. ACCUTANE [Suspect]
     Indication: ACNE
     Route: 048
     Dates: start: 19921019, end: 19921221

REACTIONS (9)
  - IRRITABLE BOWEL SYNDROME [None]
  - COLITIS MICROSCOPIC [None]
  - INFLAMMATORY BOWEL DISEASE [None]
  - DEPRESSION [None]
  - ARTHRITIS [None]
  - MYALGIA [None]
  - DRY SKIN [None]
  - SUICIDAL IDEATION [None]
  - HAEMORRHOIDS [None]
